FAERS Safety Report 25213146 (Version 1)
Quarter: 2025Q2

REPORT INFORMATION
  Report Type: Spontaneous
  Country: JP (occurrence: JP)
  Receive Date: 20250418
  Receipt Date: 20250418
  Transmission Date: 20250717
  Serious: Yes (Hospitalization)
  Sender: PFIZER
  Company Number: JP-PFIZER INC-PV202500042768

PATIENT
  Age: 77 Year
  Sex: Male
  Weight: 65.6 kg

DRUGS (12)
  1. PAXLOVID [Interacting]
     Active Substance: NIRMATRELVIR\RITONAVIR
     Indication: COVID-19 treatment
     Dosage: [NIRMATRELVIR 300 MG]/[RITONAVIR 100 MG]; 2X/DAY
     Route: 048
     Dates: start: 20250108, end: 20250113
  2. TACROLIMUS [Interacting]
     Active Substance: TACROLIMUS
     Indication: Rheumatoid arthritis
     Dosage: 1 MG, 1X/DAY
     Route: 048
     Dates: start: 20200701, end: 20250114
  3. EBASTINE [Concomitant]
     Active Substance: EBASTINE
     Dosage: 10 MG, 1X/DAY, AFTER BREAKFAST
  4. ESOMEPRAZOLE [Concomitant]
     Active Substance: ESOMEPRAZOLE
     Dosage: 20 MG, 1X/DAY, AFTER BREAKFAST
  5. DAYVIGO [Concomitant]
     Active Substance: LEMBOREXANT
     Dosage: 10 MG, 1X/DAY, BEFORE BEDTIME
  6. HUMALOG [Concomitant]
     Active Substance: INSULIN LISPRO
  7. LAGNOS NF [Concomitant]
     Dosage: 1 DF, 2X/DAY, AFTER BREAKFAST AND DINNER
  8. CARBOCYSTEINE [Concomitant]
     Active Substance: CARBOCYSTEINE
     Dosage: 250 MG, 2X/DAY, AFTER BREAKFAST AND DINNER
  9. MAGNESIUM OXIDE [Concomitant]
     Active Substance: MAGNESIUM OXIDE
     Dosage: 330 MG, 1X/DAY, AFTER BREAKFAST
  10. NIFEDIPINE [Concomitant]
     Active Substance: NIFEDIPINE
     Dosage: 20 MG, 1X/DAY, AFTER BREAKFAST
  11. PREDONINE [Concomitant]
     Active Substance: PREDNISOLONE
  12. TENELIGLIPTIN [Concomitant]
     Active Substance: TENELIGLIPTIN
     Dosage: 20 MG, 1X/DAY, AFTER BREAKFAST

REACTIONS (4)
  - Labelled drug-drug interaction medication error [Unknown]
  - Drug interaction [Unknown]
  - Renal disorder [Recovered/Resolved]
  - Immunosuppressant drug level increased [Recovering/Resolving]

NARRATIVE: CASE EVENT DATE: 20250108
